FAERS Safety Report 19747426 (Version 2)
Quarter: 2021Q3

REPORT INFORMATION
  Report Type: Spontaneous
  Country: IL (occurrence: IL)
  Receive Date: 20210825
  Receipt Date: 20210907
  Transmission Date: 20211014
  Serious: Yes (Death)
  Sender: FDA-Public Use
  Company Number: IL-KARYOPHARM-2021KPT001075

PATIENT

DRUGS (9)
  1. STUNARONE [Concomitant]
  2. TENOFOVIR [Concomitant]
     Active Substance: TENOFOVIR
  3. ALLORIL [Concomitant]
     Active Substance: ALLOPURINOL
  4. LYRICA [Concomitant]
     Active Substance: PREGABALIN
  5. TARGIN [Concomitant]
     Active Substance: NALOXONE HYDROCHLORIDE\OXYCODONE HYDROCHLORIDE
  6. ACYCLO?V [Concomitant]
  7. DISEPTYL FORTE [Concomitant]
  8. XPOVIO [Suspect]
     Active Substance: SELINEXOR
     Indication: DIFFUSE LARGE B-CELL LYMPHOMA
     Dosage: 40 MG, 2X/WEEK
     Route: 048
     Dates: start: 20210707, end: 20210801
  9. CARDILOC [Concomitant]
     Active Substance: BISOPROLOL FUMARATE

REACTIONS (6)
  - Insomnia [Unknown]
  - Decreased appetite [Unknown]
  - Death [Fatal]
  - Skin lesion [Unknown]
  - Somnolence [Unknown]
  - Disturbance in attention [Unknown]

NARRATIVE: CASE EVENT DATE: 20210810
